FAERS Safety Report 13374214 (Version 1)
Quarter: 2017Q1

REPORT INFORMATION
  Report Type: Spontaneous
  Country: US (occurrence: US)
  Receive Date: 20170327
  Receipt Date: 20170327
  Transmission Date: 20170429
  Serious: Yes (Death)
  Sender: FDA-Public Use
  Company Number: None

PATIENT
  Age: 58 Year
  Sex: Male

DRUGS (4)
  1. GABAPENTIN. [Concomitant]
     Active Substance: GABAPENTIN
  2. ZELBORAF [Suspect]
     Active Substance: VEMURAFENIB
     Indication: MALIGNANT MELANOMA
     Route: 048
     Dates: start: 20161020, end: 20170323
  3. LORAZEPAM. [Concomitant]
     Active Substance: LORAZEPAM
  4. COTELLIC [Suspect]
     Active Substance: COBIMETINIB
     Indication: MALIGNANT MELANOMA
     Route: 048
     Dates: start: 20161020, end: 20170323

REACTIONS (1)
  - Death [None]

NARRATIVE: CASE EVENT DATE: 20170323
